FAERS Safety Report 9262559 (Version 1)
Quarter: 2013Q2

REPORT INFORMATION
  Report Type: Report from Study
  Country: CA (occurrence: CA)
  Receive Date: 20130430
  Receipt Date: 20130430
  Transmission Date: 20140414
  Serious: Yes (Other)
  Sender: FDA-Public Use
  Company Number: CA-JNJFOC-20130309427

PATIENT
  Age: 65 Year
  Sex: Female
  Weight: 75 kg

DRUGS (6)
  1. REMICADE [Suspect]
     Indication: RHEUMATOID ARTHRITIS
     Route: 042
     Dates: start: 20050429
  2. AMITRIPTYLINE [Concomitant]
     Route: 065
  3. FOLIC ACID [Concomitant]
     Route: 065
  4. ACLASTA [Concomitant]
     Route: 065
  5. 6MP [Concomitant]
     Route: 065
  6. TRAZODONE [Concomitant]
     Dosage: WHEN REQUIRED
     Route: 065

REACTIONS (1)
  - Oophorectomy bilateral [Recovered/Resolved]
